FAERS Safety Report 12470249 (Version 1)
Quarter: 2016Q2

REPORT INFORMATION
  Report Type: Spontaneous
  Country: US (occurrence: US)
  Receive Date: 20160616
  Receipt Date: 20160616
  Transmission Date: 20160815
  Serious: No
  Sender: FDA-Public Use
  Company Number: US-BIOGEN-2016BI00248516

PATIENT
  Sex: Female

DRUGS (1)
  1. AVONEX [Suspect]
     Active Substance: INTERFERON BETA-1A
     Indication: MULTIPLE SCLEROSIS
     Route: 065
     Dates: start: 20091006, end: 20140205

REACTIONS (4)
  - Fear of injection [Not Recovered/Not Resolved]
  - General symptom [Recovered/Resolved]
  - Nervousness [Not Recovered/Not Resolved]
  - Memory impairment [Not Recovered/Not Resolved]
